FAERS Safety Report 9335609 (Version 1)
Quarter: 2013Q2

REPORT INFORMATION
  Report Type: Spontaneous
  Country: FR (occurrence: FR)
  Receive Date: 20130605
  Receipt Date: 20130605
  Transmission Date: 20140414
  Serious: Yes (Other)
  Sender: FDA-Public Use
  Company Number: FR-SANOFI-AVENTIS-2013SA054610

PATIENT
  Age: 38 Year
  Sex: Female

DRUGS (1)
  1. TAXOTERE [Suspect]
     Indication: BREAST CANCER
     Route: 065
     Dates: start: 20110817

REACTIONS (3)
  - Photosensitivity reaction [Recovered/Resolved]
  - Diarrhoea [Recovered/Resolved]
  - Oral fungal infection [Recovered/Resolved]
